FAERS Safety Report 7495408-4 (Version None)
Quarter: 2011Q2

REPORT INFORMATION
  Report Type: 
  Country: None (occurrence: None)
  Receive Date: 20110513
  Receipt Date: 20110502
  Transmission Date: 20111010
  Serious: Yes (Other)
  Sender: FDA-Public Use
  Company Number: MSTR-NO-1105S-0099

PATIENT
  Age: 59 Year
  Sex: Male

DRUGS (2)
  1. ESTRACYT (ESTRAMUSTINE PHOSPHATE SODIUM) [Concomitant]
  2. METASTRON [Suspect]
     Indication: METASTATIC PAIN
     Dosage: SINGLE DOSE, INTRAVENOUS
     Route: 042
     Dates: start: 20110106, end: 20110106

REACTIONS (1)
  - CARDIAC FAILURE [None]
